FAERS Safety Report 7737911-5 (Version None)
Quarter: 2011Q3

REPORT INFORMATION
  Report Type: 
  Country: None (occurrence: None)
  Receive Date: 20110908
  Receipt Date: 20110902
  Transmission Date: 20111222
  Serious: Yes (Other)
  Sender: FDA-Public Use
  Company Number: PHEH2011US02458

PATIENT
  Sex: Female
  Weight: 59.2 kg

DRUGS (7)
  1. ABILIFY [Concomitant]
     Dosage: 10 MG, UNK
     Route: 048
  2. RESTORIL [Concomitant]
     Dosage: 7.5 MG, UNK
     Route: 048
  3. PERCOCET [Concomitant]
     Dosage: 10/325 MG, UNK
     Route: 048
  4. LEXAPRO [Concomitant]
     Dosage: 20 MG, UNK
     Route: 048
  5. GILENYA [Suspect]
     Indication: RELAPSING-REMITTING MULTIPLE SCLEROSIS
     Dosage: 0.5 MG, QD
     Route: 048
     Dates: start: 20110816
  6. LAMICTAL [Concomitant]
     Dosage: 150 MG, UNK
     Route: 048
  7. TEMAZEPAM [Concomitant]
     Dosage: 20 MG, UNK
     Route: 048

REACTIONS (2)
  - VOMITING [None]
  - NAUSEA [None]
